FAERS Safety Report 24234154 (Version 1)
Quarter: 2024Q3

REPORT INFORMATION
  Report Type: Spontaneous
  Country: US (occurrence: US)
  Receive Date: 20240821
  Receipt Date: 20240821
  Transmission Date: 20241017
  Serious: No
  Sender: BAYER
  Company Number: US-BAYER-2024A117561

PATIENT
  Sex: Female
  Weight: 96.61 kg

DRUGS (18)
  1. CIPROFLOXACIN [Suspect]
     Active Substance: CIPROFLOXACIN
     Indication: Haematoma
     Dosage: UNK
  2. LENVIMA [Concomitant]
     Active Substance: LENVATINIB
     Indication: Endometrial neoplasm
     Dosage: 14 MG, QD
     Route: 048
     Dates: start: 20240324
  3. METAMUCIL [Concomitant]
     Active Substance: PLANTAGO SEED
     Route: 048
  4. LEVOTHYROXINE SODIUM [Concomitant]
     Active Substance: LEVOTHYROXINE SODIUM
     Dosage: 0.1 MG
     Route: 048
  5. LABETALOL HYDROCHLORIDE [Concomitant]
     Active Substance: LABETALOL\LABETALOL HYDROCHLORIDE
     Dosage: 200 MG
     Route: 048
  6. Ayr [Concomitant]
     Dosage: 2.65 %
  7. VITAMINS [Concomitant]
     Active Substance: VITAMINS
     Route: 048
  8. ZINC [Concomitant]
     Active Substance: ZINC
     Dosage: 50 MG
     Route: 048
  9. MAGNESIUM OXIDE [Concomitant]
     Active Substance: MAGNESIUM OXIDE
     Dosage: 500 MG
     Route: 048
  10. CALCIUM CARBONATE\VITAMIN D [Concomitant]
     Active Substance: CALCIUM CARBONATE\VITAMIN D
  11. VITAMIN C [Concomitant]
     Active Substance: ASCORBIC ACID
     Dosage: 500 MG
     Route: 048
  12. CYANOCOBALAMIN [Concomitant]
     Active Substance: CYANOCOBALAMIN
     Dosage: 1 MG
     Route: 048
  13. VITAMIN D3 [Concomitant]
     Active Substance: CHOLECALCIFEROL
     Dosage: 0.25 MG
     Route: 048
  14. KEYTRUDA [Concomitant]
     Active Substance: PEMBROLIZUMAB
     Dosage: UNK
  15. TYLENOL [Concomitant]
     Active Substance: ACETAMINOPHEN
     Dosage: 325 MG
     Route: 048
  16. TART CHERRY [Concomitant]
     Route: 048
  17. MECLIZINE HYDROCHLORIDE [Concomitant]
     Active Substance: MECLIZINE HYDROCHLORIDE
     Dosage: 12.5 MG
     Route: 048
  18. ATORVASTATIN CALCIUM [Concomitant]
     Active Substance: ATORVASTATIN CALCIUM
     Dosage: 20 MG
     Route: 048

REACTIONS (3)
  - Peripheral swelling [Unknown]
  - Periorbital swelling [Unknown]
  - Product use in unapproved indication [None]
